FAERS Safety Report 7859235-8 (Version None)
Quarter: 2011Q4

REPORT INFORMATION
  Report Type: 
  Country: None (occurrence: None)
  Receive Date: 20111027
  Receipt Date: 20111027
  Transmission Date: 20120403
  Serious: Yes (Other)
  Sender: FDA-Public Use
  Company Number: None

PATIENT
  Age: 53 Year
  Sex: Female
  Weight: 63.502 kg

DRUGS (2)
  1. LEVAQUIN [Suspect]
     Indication: PNEUMONIA
     Dosage: UNKNOWN
     Route: 041
     Dates: start: 20110607, end: 20110608
  2. LEVAQUIN [Concomitant]
     Dosage: 500 MGS.
     Route: 048
     Dates: start: 20110609, end: 20110615

REACTIONS (7)
  - FATIGUE [None]
  - MUSCLE SPASMS [None]
  - HYPOAESTHESIA [None]
  - PAIN IN EXTREMITY [None]
  - PARAESTHESIA [None]
  - ASTHENIA [None]
  - ARTHRALGIA [None]
